FAERS Safety Report 22365582 (Version 1)
Quarter: 2023Q2

REPORT INFORMATION
  Report Type: Spontaneous
  Country: US (occurrence: US)
  Receive Date: 20230525
  Receipt Date: 20230525
  Transmission Date: 20230721
  Serious: Yes (Hospitalization, Other)
  Sender: FDA-Public Use
  Company Number: US-LUPIN PHARMACEUTICALS INC.-2023-04013

PATIENT

DRUGS (1)
  1. CLONIDINE [Suspect]
     Active Substance: CLONIDINE
     Indication: Product used for unknown indication
     Dosage: UNK, AT LEAST 10 PILLS
     Route: 064

REACTIONS (3)
  - Foetal distress syndrome [Unknown]
  - Heart rate decreased [Recovered/Resolved]
  - Foetal exposure during pregnancy [Unknown]
